FAERS Safety Report 9986780 (Version 1)
Quarter: 2014Q1

REPORT INFORMATION
  Report Type: Report from Study
  Country: US (occurrence: US)
  Receive Date: 20140307
  Receipt Date: 20140307
  Transmission Date: 20141002
  Serious: No
  Sender: FDA-Public Use
  Company Number: US-ABBVIE-13P-163-1081148-00

PATIENT
  Age: 78 Year
  Sex: Female
  Weight: 63.11 kg

DRUGS (2)
  1. HUMIRA [Suspect]
     Indication: PSORIASIS
     Route: 058
     Dates: start: 201302
  2. UNKNOWN EYE MEDICATION [Concomitant]
     Indication: GLAUCOMA

REACTIONS (1)
  - Nasopharyngitis [Recovering/Resolving]
